FAERS Safety Report 21138185 (Version 2)
Quarter: 2022Q3

REPORT INFORMATION
  Report Type: Spontaneous
  Country: US (occurrence: US)
  Receive Date: 20220727
  Receipt Date: 20220802
  Transmission Date: 20221027
  Serious: No
  Sender: FDA-Public Use
  Company Number: US-BIOGEN-2021BI01004455

PATIENT
  Sex: Female

DRUGS (6)
  1. TECFIDERA [Suspect]
     Active Substance: DIMETHYL FUMARATE
     Indication: Multiple sclerosis
     Route: 050
     Dates: start: 20190717, end: 202010
  2. TECFIDERA [Suspect]
     Active Substance: DIMETHYL FUMARATE
     Route: 050
     Dates: start: 20210415
  3. TECFIDERA [Suspect]
     Active Substance: DIMETHYL FUMARATE
     Route: 050
     Dates: start: 20190717, end: 20200801
  4. TECFIDERA [Suspect]
     Active Substance: DIMETHYL FUMARATE
     Route: 050
     Dates: start: 20210414
  5. DUEXIS [Concomitant]
     Active Substance: FAMOTIDINE\IBUPROFEN
     Route: 050
  6. FISH OIL OMEGA-3 [Concomitant]
     Route: 050

REACTIONS (3)
  - Multiple sclerosis [Not Recovered/Not Resolved]
  - Hot flush [Not Recovered/Not Resolved]
  - Flushing [Unknown]
